FAERS Safety Report 8444775-3 (Version None)
Quarter: 2012Q2

REPORT INFORMATION
  Report Type: 
  Country: None (occurrence: None)
  Receive Date: 20120618
  Receipt Date: 20120605
  Transmission Date: 20120825
  Serious: No
  Sender: FDA-Public Use
  Company Number: US-ASTRAZENECA-2011SE63741

PATIENT
  Age: 66 Year
  Sex: Female

DRUGS (5)
  1. ATACAND HCT [Suspect]
     Route: 048
     Dates: start: 20110101
  2. ATACAND [Suspect]
     Route: 048
     Dates: start: 20110101
  3. ATACAND [Suspect]
     Route: 048
     Dates: start: 20120201
  4. ATACAND HCT [Suspect]
     Dosage: 16+12.5 MG ONE TABLET PER DAY
     Route: 048
  5. ATACAND [Suspect]
     Route: 048

REACTIONS (2)
  - INCORRECT DOSE ADMINISTERED [None]
  - HYPOTENSION [None]
